FAERS Safety Report 12528891 (Version 2)
Quarter: 2016Q3

REPORT INFORMATION
  Report Type: Report from Study
  Country: CA (occurrence: CA)
  Receive Date: 20160705
  Receipt Date: 20160809
  Transmission Date: 20161109
  Serious: Yes (Other)
  Sender: FDA-Public Use
  Company Number: CA-JNJFOC-20160627262

PATIENT
  Age: 45 Year
  Sex: Female
  Weight: 91 kg

DRUGS (1)
  1. REMICADE [Suspect]
     Active Substance: INFLIXIMAB
     Indication: HIDRADENITIS
     Dosage: THERAPY DURATION-27 INFUSIONS
     Route: 042

REACTIONS (4)
  - Abscess [Unknown]
  - Dysmenorrhoea [Unknown]
  - Subcutaneous abscess [Unknown]
  - Groin abscess [Unknown]

NARRATIVE: CASE EVENT DATE: 20160624
